FAERS Safety Report 8422719-8 (Version None)
Quarter: 2012Q2

REPORT INFORMATION
  Report Type: 
  Country: None (occurrence: None)
  Receive Date: 20120608
  Receipt Date: 20120605
  Transmission Date: 20120825
  Serious: Yes (Hospitalization)
  Sender: FDA-Public Use
  Company Number: IT-ROCHE-1075708

PATIENT
  Sex: Female

DRUGS (3)
  1. MABTHERA [Suspect]
     Indication: RHEUMATOID ARTHRITIS
     Route: 042
     Dates: start: 20110501, end: 20110515
  2. IMMUNOSUPPRESSANT THERAPY [Concomitant]
  3. ANTI-CD20 THERAPY NOS [Concomitant]

REACTIONS (1)
  - THYROID CANCER [None]
